FAERS Safety Report 7657295-0 (Version None)
Quarter: 2011Q3

REPORT INFORMATION
  Report Type: 
  Country: None (occurrence: None)
  Receive Date: 20110804
  Receipt Date: 20110727
  Transmission Date: 20111222
  Serious: Yes (Hospitalization)
  Sender: FDA-Public Use
  Company Number: PHHY2011EC69003

PATIENT
  Sex: Female

DRUGS (3)
  1. GLUCOSAMINE W/CHONDROITIN [Concomitant]
     Indication: ARTHRITIS
     Route: 048
  2. ZOLEDRONOC ACID [Suspect]
     Indication: OSTEOPENIA
     Dosage: 5 MG/100 ML
     Route: 042
     Dates: start: 20110501
  3. EXFORGE [Concomitant]
     Dosage: 1 TABLET 5/160MG DAILY SINCE 5 YEARS AGO
     Route: 048

REACTIONS (4)
  - THROAT TIGHTNESS [None]
  - HYPERSENSITIVITY [None]
  - DYSPNOEA [None]
  - PAIN [None]
